FAERS Safety Report 5069092-3 (Version None)
Quarter: 2006Q3

REPORT INFORMATION
  Report Type: 
  Country: None (occurrence: None)
  Receive Date: 20060731
  Receipt Date: 20060713
  Transmission Date: 20061208
  Serious: Yes (Other)
  Sender: FDA-Public Use
  Company Number: 2006US001577

PATIENT
  Age: 8 Year
  Sex: Female

DRUGS (1)
  1. PROTOPIC [Suspect]
     Indication: DRUG USE FOR UNKNOWN INDICATION
     Dosage: 0.1%, UNK, TOPICAL
     Route: 061
     Dates: end: 20060401

REACTIONS (1)
  - B-CELL LYMPHOMA [None]
